FAERS Safety Report 4416051-7 (Version None)
Quarter: 2004Q3

REPORT INFORMATION
  Report Type: 
  Country: None (occurrence: None)
  Receive Date: 20040804
  Receipt Date: 20040804
  Transmission Date: 20050211
  Serious: Yes (Hospitalization)
  Sender: FDA-Public Use
  Company Number: None

PATIENT
  Age: 89 Year
  Sex: Female

DRUGS (1)
  1. WARFARIN SODIUM [Suspect]
     Indication: HYPERCOAGULATION

REACTIONS (6)
  - ASTHENIA [None]
  - DRUG TOXICITY [None]
  - FAECAL OCCULT BLOOD POSITIVE [None]
  - FATIGUE [None]
  - HAEMATOCRIT DECREASED [None]
  - INTERNATIONAL NORMALISED RATIO INCREASED [None]
